FAERS Safety Report 5022038-6 (Version None)
Quarter: 2006Q2

REPORT INFORMATION
  Report Type: 
  Country: None (occurrence: None)
  Receive Date: 20060605
  Receipt Date: 20060523
  Transmission Date: 20061013
  Serious: Yes (Death, Other)
  Sender: FDA-Public Use
  Company Number: 2006066805

PATIENT
  Age: 31 Year
  Sex: Male

DRUGS (12)
  1. ATARAX [Suspect]
     Indication: ILL-DEFINED DISORDER
     Dosage: 200 MG (1, D), ORAL
     Route: 048
     Dates: start: 20060207, end: 20060213
  2. METHADONE HCL [Suspect]
     Indication: ILL-DEFINED DISORDER
     Dosage: 30 MG (1 D), ORAL; 40 MG; 50  MG; 60 MG; 70 MG; 80 MG
     Route: 048
     Dates: start: 20060201, end: 20060201
  3. METHADONE HCL [Suspect]
     Indication: ILL-DEFINED DISORDER
     Dosage: 30 MG (1 D), ORAL; 40 MG; 50  MG; 60 MG; 70 MG; 80 MG
     Route: 048
     Dates: start: 20060209, end: 20060209
  4. METHADONE HCL [Suspect]
     Indication: ILL-DEFINED DISORDER
     Dosage: 30 MG (1 D), ORAL; 40 MG; 50  MG; 60 MG; 70 MG; 80 MG
     Route: 048
     Dates: start: 20060210, end: 20060210
  5. METHADONE HCL [Suspect]
     Indication: ILL-DEFINED DISORDER
     Dosage: 30 MG (1 D), ORAL; 40 MG; 50  MG; 60 MG; 70 MG; 80 MG
     Route: 048
     Dates: start: 20060211, end: 20060211
  6. METHADONE HCL [Suspect]
     Indication: ILL-DEFINED DISORDER
     Dosage: 30 MG (1 D), ORAL; 40 MG; 50  MG; 60 MG; 70 MG; 80 MG
     Route: 048
     Dates: start: 20060207, end: 20060212
  7. METHADONE HCL [Suspect]
     Indication: ILL-DEFINED DISORDER
     Dosage: 30 MG (1 D), ORAL; 40 MG; 50  MG; 60 MG; 70 MG; 80 MG
     Route: 048
     Dates: start: 20060212, end: 20060212
  8. CLONAZEPAM [Suspect]
     Indication: ILL-DEFINED DISORDER
     Dosage: 6 MG (2 MG, 3 IN 1 D), ORAL
     Route: 048
     Dates: start: 20060206, end: 20060213
  9. BACTRIM [Suspect]
     Indication: ILL-DEFINED DISORDER
     Dosage: 2 DF (1 D), ORAL
     Route: 048
     Dates: start: 20060210, end: 20060212
  10. ACETAMINOPHEN W/ PROPOXYPHENE HCL [Suspect]
     Indication: ILL-DEFINED DISORDER
     Dosage: 6 DF (1 D), ORAL
     Route: 048
     Dates: start: 20060210, end: 20060211
  11. TERCIAN (CYAMEMAZINE) [Suspect]
     Indication: ILL-DEFINED DISORDER
     Dosage: ORAL
     Route: 048
     Dates: start: 20060206, end: 20060213
  12. SNECTITE (SMECTITE) [Concomitant]

REACTIONS (1)
  - DEATH [None]
